FAERS Safety Report 17681033 (Version 1)
Quarter: 2020Q2

REPORT INFORMATION
  Report Type: Report from Study
  Country: JP (occurrence: JP)
  Receive Date: 20200417
  Receipt Date: 20200417
  Transmission Date: 20200714
  Serious: Yes (Hospitalization)
  Sender: FDA-Public Use
  Company Number: JP-EISAI MEDICAL RESEARCH-EC-2020-073401

PATIENT
  Age: 73 Year
  Sex: Male
  Weight: 59 kg

DRUGS (25)
  1. MITOMYCIN C [Concomitant]
     Active Substance: MITOMYCIN
  2. ANTEBATE [Concomitant]
     Active Substance: BETAMETHASONE DIPROPIONATE
  3. ADALAT [Concomitant]
     Active Substance: NIFEDIPINE
  4. LOXONIN [Concomitant]
     Active Substance: LOXOPROFEN SODIUM
  5. NEXIUM [Concomitant]
     Active Substance: ESOMEPRAZOLE MAGNESIUM
  6. CANDESARTAN. [Concomitant]
     Active Substance: CANDESARTAN
  7. AMARYL [Concomitant]
     Active Substance: GLIMEPIRIDE
  8. LENVATINIB [Suspect]
     Active Substance: LENVATINIB
     Dosage: DOSE INCREASE (8MG) AND REDUCTION (4MG) ALTERNATELY
     Route: 048
     Dates: start: 20190423, end: 20190512
  9. ARTIST [Concomitant]
     Active Substance: CARVEDILOL
  10. ZOLPIDEM TARTRATE. [Concomitant]
     Active Substance: ZOLPIDEM TARTRATE
  11. BELSOMRA [Concomitant]
     Active Substance: SUVOREXANT
  12. LENVATINIB [Suspect]
     Active Substance: LENVATINIB
     Indication: HEPATOCELLULAR CARCINOMA
     Route: 048
     Dates: start: 20190220, end: 20190305
  13. LENVATINIB [Suspect]
     Active Substance: LENVATINIB
     Route: 048
     Dates: start: 20190312, end: 20190410
  14. LENVATINIB [Suspect]
     Active Substance: LENVATINIB
     Route: 048
     Dates: start: 20190617
  15. HIRUDOID [Concomitant]
     Active Substance: GLYCOSAMINOGLYCANS
  16. LOXOPROFEN [Concomitant]
     Active Substance: LOXOPROFEN
  17. MAGMITT [Concomitant]
     Active Substance: MAGNESIUM OXIDE
  18. LENVATINIB [Suspect]
     Active Substance: LENVATINIB
     Dosage: 8MG WITH DOSE INCREASE AND REDUCTION ALTERNATELY
     Route: 048
     Dates: start: 20190513, end: 20190610
  19. LACTULOSE. [Concomitant]
     Active Substance: LACTULOSE
  20. NESINA [Concomitant]
     Active Substance: ALOGLIPTIN BENZOATE
  21. BAYASPIRIN [Concomitant]
     Active Substance: ASPIRIN
  22. VONFENAC [Concomitant]
     Active Substance: DICLOFENAC SODIUM
  23. ROSUVASTATIN. [Concomitant]
     Active Substance: ROSUVASTATIN
  24. METGLUCO [Concomitant]
     Active Substance: METFORMIN HYDROCHLORIDE
  25. LENVATINIB [Suspect]
     Active Substance: LENVATINIB
     Route: 048
     Dates: start: 20190415, end: 20190422

REACTIONS (1)
  - Cholangitis acute [Not Recovered/Not Resolved]

NARRATIVE: CASE EVENT DATE: 20200414
